FAERS Safety Report 11595171 (Version 1)
Quarter: 2015Q4

REPORT INFORMATION
  Report Type: Spontaneous
  Country: GB (occurrence: GB)
  Receive Date: 20151006
  Receipt Date: 20151006
  Transmission Date: 20160304
  Serious: Yes (Hospitalization)
  Sender: FDA-Public Use
  Company Number: GB-AUROBINDO-AUR-APL-2015-08812

PATIENT

DRUGS (2)
  1. SODIUM CHLORIDE. [Suspect]
     Active Substance: SODIUM CHLORIDE
     Indication: OTITIS EXTERNA
     Route: 065
     Dates: start: 20130519, end: 20130618
  2. PIPERACILLIN+TAZOBACTAM INJECTION [Suspect]
     Active Substance: PIPERACILLIN SODIUM\TAZOBACTAM SODIUM
     Indication: OTITIS EXTERNA
     Route: 065
     Dates: start: 20130519, end: 20130618

REACTIONS (3)
  - C-reactive protein increased [Unknown]
  - Confusional state [Unknown]
  - Pyrexia [Unknown]
